FAERS Safety Report 5105561-5 (Version None)
Quarter: 2006Q3

REPORT INFORMATION
  Report Type: 
  Country: None (occurrence: None)
  Receive Date: 20060915
  Receipt Date: 20060905
  Transmission Date: 20061208
  Serious: Yes (Death, Hospitalization)
  Sender: FDA-Public Use
  Company Number: US-JNJFOC-20060902121

PATIENT
  Age: 49 Year
  Sex: Female

DRUGS (4)
  1. DIPHENHYDRAMINE HCL [Suspect]
     Indication: SUICIDE ATTEMPT
     Route: 048
  2. ACETAMINOPHEN, ASPIRIN AND CAFFEINE [Suspect]
     Indication: SUICIDE ATTEMPT
     Dosage: 100-150 TABLETS
     Route: 048
  3. BUPROPION HCL [Concomitant]
  4. PROCHLORPERAZINE [Concomitant]

REACTIONS (20)
  - AGITATION [None]
  - BLOOD GLUCOSE DECREASED [None]
  - BLOOD LACTIC ACID INCREASED [None]
  - BLOOD PRESSURE SYSTOLIC INCREASED [None]
  - BODY TEMPERATURE INCREASED [None]
  - BRADYCARDIA [None]
  - COAGULOPATHY [None]
  - COMPLETED SUICIDE [None]
  - DIALYSIS [None]
  - FLUSHING [None]
  - HYPERAMMONAEMIA [None]
  - HYPOTENSION [None]
  - INTERNATIONAL NORMALISED RATIO INCREASED [None]
  - METABOLIC ACIDOSIS [None]
  - MULTIPLE DRUG OVERDOSE INTENTIONAL [None]
  - RENAL IMPAIRMENT [None]
  - RESPIRATORY DISTRESS [None]
  - RHABDOMYOLYSIS [None]
  - SOMNOLENCE [None]
  - VENTRICULAR TACHYCARDIA [None]
